FAERS Safety Report 8399839-X (Version None)
Quarter: 2012Q2

REPORT INFORMATION
  Report Type: 
  Country: None (occurrence: None)
  Receive Date: 20120531
  Receipt Date: 20120528
  Transmission Date: 20120825
  Serious: Yes (Other)
  Sender: FDA-Public Use
  Company Number: BR-PFIZER INC-2012128606

PATIENT
  Age: 67 Year
  Sex: Female

DRUGS (13)
  1. OMEPRAZOLE [Concomitant]
     Indication: GASTROOESOPHAGEAL REFLUX DISEASE
  2. SYNTHROID [Concomitant]
     Indication: THYROIDECTOMY
  3. LYRICA [Suspect]
     Indication: INTERVERTEBRAL DISC PROTRUSION
     Dosage: 75 MG, UNK
  4. CALDE [Concomitant]
     Indication: BLOOD CALCIUM DECREASED
  5. LIPLESS [Concomitant]
     Indication: BLOOD TRIGLYCERIDES
  6. TOPIRAMATE [Concomitant]
     Indication: OBESITY
  7. AMLODIPINE [Concomitant]
     Indication: HYPERTENSION
  8. BUPROPION [Concomitant]
     Indication: OBESITY
  9. CAPTOPRIL [Concomitant]
     Indication: HYPERTENSION
  10. CALDE [Concomitant]
     Indication: MUSCLE SPASMS
  11. METFORMIN [Concomitant]
     Indication: DIABETES MELLITUS
  12. CELEBREX [Suspect]
     Indication: INTERVERTEBRAL DISC PROTRUSION
     Dosage: DAY
     Route: 048
     Dates: start: 20120428
  13. METHYLDOPA [Concomitant]
     Indication: HYPERTENSION

REACTIONS (4)
  - SPINAL PAIN [None]
  - NERVE COMPRESSION [None]
  - DRUG INEFFECTIVE [None]
  - BEDRIDDEN [None]
